FAERS Safety Report 24889775 (Version 1)
Quarter: 2025Q1

REPORT INFORMATION
  Report Type: Spontaneous
  Country: RO (occurrence: RO)
  Receive Date: 20250127
  Receipt Date: 20250127
  Transmission Date: 20250408
  Serious: Yes (Death)
  Sender: ROCHE
  Company Number: RO-ROCHE-10000183413

PATIENT
  Age: 60 Year
  Sex: Female

DRUGS (8)
  1. ATEZOLIZUMAB [Suspect]
     Active Substance: ATEZOLIZUMAB
     Indication: Lung adenocarcinoma
     Route: 065
     Dates: start: 201701, end: 202405
  2. BEVACIZUMAB [Suspect]
     Active Substance: BEVACIZUMAB
     Indication: Lung adenocarcinoma
     Route: 065
     Dates: start: 201701, end: 202405
  3. ERLOTINIB [Concomitant]
     Active Substance: ERLOTINIB
     Dates: start: 201701, end: 202405
  4. OSIMERTINIB [Concomitant]
     Active Substance: OSIMERTINIB
     Dates: start: 201701, end: 202405
  5. CARBOPLATIN [Concomitant]
     Active Substance: CARBOPLATIN
     Dates: start: 201701, end: 202405
  6. PACLITAXEL [Concomitant]
     Active Substance: PACLITAXEL
     Dates: start: 201701, end: 202405
  7. ZOLEDRONIC ACID [Concomitant]
     Active Substance: ZOLEDRONIC ACID
  8. DENOSUMAB [Concomitant]
     Active Substance: DENOSUMAB

REACTIONS (3)
  - Disease progression [Fatal]
  - Metastases to meninges [Fatal]
  - Erythema [Unknown]
